FAERS Safety Report 23969613 (Version 1)
Quarter: 2024Q2

REPORT INFORMATION
  Report Type: Report from Study
  Country: MX (occurrence: MX)
  Receive Date: 20240613
  Receipt Date: 20240613
  Transmission Date: 20240716
  Serious: Yes (Death)
  Sender: FDA-Public Use
  Company Number: MX-ABBVIE-5798772

PATIENT
  Sex: Female

DRUGS (2)
  1. VENCLEXTA [Suspect]
     Active Substance: VENETOCLAX
     Indication: Chronic lymphocytic leukaemia
     Dosage: VENCLEXTA STARTER PACK
     Route: 048
     Dates: start: 20240406, end: 20240531
  2. AZACITIDINE [Suspect]
     Active Substance: AZACITIDINE
     Indication: Product used for unknown indication
     Route: 065
     Dates: end: 2024

REACTIONS (2)
  - Cardiac arrest [Fatal]
  - Anxiety [Unknown]

NARRATIVE: CASE EVENT DATE: 20240101
